FAERS Safety Report 6137603-2 (Version None)
Quarter: 2009Q1

REPORT INFORMATION
  Report Type: 
  Country: None (occurrence: None)
  Receive Date: 20090331
  Receipt Date: 20090323
  Transmission Date: 20090719
  Serious: No
  Sender: FDA-Public Use
  Company Number: US-JNJFOC-20090306116

PATIENT
  Sex: Male
  Weight: 117.03 kg

DRUGS (9)
  1. DURAGESIC-100 [Suspect]
     Route: 062
  2. DURAGESIC-100 [Suspect]
     Indication: BACK PAIN
     Route: 062
  3. DURAGESIC-100 [Suspect]
     Indication: COMPLEX REGIONAL PAIN SYNDROME
     Route: 062
  4. FENTANYL TRANSDERMAL SYSTEM [Concomitant]
  5. FENTANYL TRANSDERMAL SYSTEM [Concomitant]
  6. NORCO [Concomitant]
     Indication: BREAKTHROUGH PAIN
     Dosage: 10/325MG EVERY 3-4 HOURS AS NEEDED
     Route: 048
  7. CYMBALTA [Concomitant]
     Indication: NEURALGIA
     Route: 048
  8. CYMBALTA [Concomitant]
     Indication: COMPLEX REGIONAL PAIN SYNDROME
     Route: 048
  9. CYMBALTA [Concomitant]
     Indication: DEPRESSION
     Route: 048

REACTIONS (7)
  - BODY TEMPERATURE INCREASED [None]
  - DRUG PRESCRIBING ERROR [None]
  - INCORRECT DRUG ADMINISTRATION RATE [None]
  - PAIN [None]
  - PRODUCT QUALITY ISSUE [None]
  - WITHDRAWAL SYNDROME [None]
  - WRONG TECHNIQUE IN DRUG USAGE PROCESS [None]
